FAERS Safety Report 9108384 (Version 2)
Quarter: 2013Q2

REPORT INFORMATION
  Report Type: Spontaneous
  Country: US (occurrence: US)
  Receive Date: 20130222
  Receipt Date: 20130408
  Transmission Date: 20140414
  Serious: Yes (Hospitalization)
  Sender: FDA-Public Use
  Company Number: US-BAYER-2013-022343

PATIENT
  Age: 17 Year
  Sex: Female

DRUGS (12)
  1. YAZ [Suspect]
  2. YASMIN [Suspect]
  3. OCELLA [Suspect]
  4. GIANVI [Suspect]
  5. PAXIL [Concomitant]
     Dosage: UNK
     Dates: start: 20070414
  6. TETRACYCLINE [Concomitant]
  7. LEVOFLOXACIN [Concomitant]
  8. TORADOL [Concomitant]
  9. MORPHINE [Concomitant]
  10. ULTRAM [Concomitant]
  11. CHANTIX [Concomitant]
  12. TYLENOL [Concomitant]

REACTIONS (2)
  - Pulmonary embolism [Recovered/Resolved]
  - Injury [Recovered/Resolved]
